FAERS Safety Report 24529308 (Version 1)
Quarter: 2024Q4

REPORT INFORMATION
  Report Type: Spontaneous
  Country: US (occurrence: None)
  Receive Date: 20241020
  Receipt Date: 20241020
  Transmission Date: 20250114
  Serious: Yes (Life-Threatening, Hospitalization)
  Sender: Public
  Company Number: None

PATIENT
  Age: 46 Year
  Sex: Female
  Weight: 63.9 kg

DRUGS (1)
  1. OLMESARTAN [Suspect]
     Active Substance: OLMESARTAN
     Indication: Hypertension
     Route: 048

REACTIONS (8)
  - Illness [None]
  - Diarrhoea [None]
  - Nausea [None]
  - Vomiting [None]
  - Electrolyte imbalance [None]
  - Hypotension [None]
  - Renal injury [None]
  - Malnutrition [None]

NARRATIVE: CASE EVENT DATE: 20240927
